FAERS Safety Report 25236616 (Version 1)
Quarter: 2025Q2

REPORT INFORMATION
  Report Type: Spontaneous
  Country: PR (occurrence: PR)
  Receive Date: 20250424
  Receipt Date: 20250424
  Transmission Date: 20250716
  Serious: No
  Sender: PFIZER
  Company Number: PR-PFIZER INC-202500085682

PATIENT
  Age: 74 Year
  Sex: Female

DRUGS (1)
  1. ZOLEDRONIC ACID [Suspect]
     Active Substance: ZOLEDRONIC ACID

REACTIONS (6)
  - Back pain [Unknown]
  - Joint swelling [Unknown]
  - Arthralgia [Unknown]
  - Headache [Unknown]
  - Pyrexia [Unknown]
  - Blister [Unknown]
